FAERS Safety Report 11362794 (Version 1)
Quarter: 2015Q3

REPORT INFORMATION
  Report Type: Spontaneous
  Country: US (occurrence: None)
  Receive Date: 20150807
  Receipt Date: 20150807
  Transmission Date: 20151125
  Serious: Yes (Life-Threatening)
  Sender: FDA-Public Use
  Company Number: None

PATIENT
  Age: 52 Year
  Sex: Female

DRUGS (3)
  1. OMNIPAQUE [Concomitant]
     Active Substance: IOHEXOL
  2. KENALOG-40 [Suspect]
     Active Substance: TRIAMCINOLONE ACETONIDE
     Indication: BACK PAIN
     Route: 008
     Dates: start: 20150806, end: 20150806
  3. XYLOCAINE-MPF [Suspect]
     Active Substance: LIDOCAINE HYDROCHLORIDE
     Indication: BACK PAIN
     Route: 008
     Dates: start: 20150806, end: 20150806

REACTIONS (1)
  - Presyncope [None]

NARRATIVE: CASE EVENT DATE: 20150806
